FAERS Safety Report 9119833 (Version 1)
Quarter: 2013Q1

REPORT INFORMATION
  Report Type: Report from Study
  Country: CA (occurrence: CA)
  Receive Date: 20130226
  Receipt Date: 20130226
  Transmission Date: 20140127
  Serious: Yes (Other)
  Sender: FDA-Public Use
  Company Number: CA-JNJFOC-20130209058

PATIENT
  Age: 26 Year
  Sex: Male
  Weight: 61.2 kg

DRUGS (2)
  1. REMICADE [Suspect]
     Indication: CROHN^S DISEASE
     Route: 042
     Dates: start: 20110607
  2. VITAMIN D [Concomitant]
     Route: 065

REACTIONS (2)
  - Wisdom teeth removal [Recovered/Resolved]
  - Arthralgia [Not Recovered/Not Resolved]
